FAERS Safety Report 4404298-5 (Version None)
Quarter: 2004Q3

REPORT INFORMATION
  Report Type: 
  Country: None (occurrence: None)
  Receive Date: 20040720
  Receipt Date: 20040708
  Transmission Date: 20050211
  Serious: Yes (Life-Threatening, Hospitalization)
  Sender: FDA-Public Use
  Company Number: 2002GB01418

PATIENT
  Age: 65 Year
  Sex: Female

DRUGS (16)
  1. NOLVADEX [Suspect]
     Indication: BREAST CANCER
     Dosage: 20 MG QD PO
     Route: 048
     Dates: start: 19981223
  2. DIPROSONE [Concomitant]
  3. ELOCON [Concomitant]
  4. TACROLIMUS [Concomitant]
  5. MYCOPHENOLATE MOFETIL [Concomitant]
  6. SENNA [Concomitant]
  7. PARACETAMOL [Concomitant]
  8. ATENOLOL [Concomitant]
  9. THYROXINE [Concomitant]
  10. CLONIDINE HCL [Concomitant]
  11. TOLTERODINE [Concomitant]
  12. FLUOXETINE [Concomitant]
  13. MINOCYCLINE HCL [Concomitant]
  14. LANSOPRAZOLE [Concomitant]
  15. ONDANSETRON [Concomitant]
  16. DERMOVATE [Concomitant]

REACTIONS (2)
  - CELLULITIS [None]
  - DEEP VEIN THROMBOSIS [None]
